FAERS Safety Report 11843490 (Version 3)
Quarter: 2016Q2

REPORT INFORMATION
  Report Type: Report from Study
  Country: US (occurrence: US)
  Receive Date: 20151217
  Receipt Date: 20160418
  Transmission Date: 20160815
  Serious: Yes (Other)
  Sender: FDA-Public Use
  Company Number: US-AMGEN-USASL2015132552

PATIENT
  Age: 85 Year
  Sex: Male

DRUGS (2)
  1. NITRO                              /00003201/ [Concomitant]
     Active Substance: NITROGLYCERIN
     Indication: CHEST PAIN
     Dosage: UNK
  2. REPATHA [Suspect]
     Active Substance: EVOLOCUMAB
     Indication: HYPERCHOLESTEROLAEMIA
     Dosage: 140 MG, Q2WK
     Route: 065
     Dates: start: 20151117

REACTIONS (17)
  - Weight increased [Recovered/Resolved]
  - Neck pain [Recovered/Resolved]
  - Intestinal obstruction [Unknown]
  - Deafness [Recovered/Resolved]
  - Sinus congestion [Recovered/Resolved]
  - Dyspnoea [Recovered/Resolved]
  - Pain in jaw [Unknown]
  - Migraine [Recovered/Resolved]
  - Feeling abnormal [Recovered/Resolved]
  - Chest pain [Not Recovered/Not Resolved]
  - Trismus [Recovered/Resolved]
  - Myalgia [Recovered/Resolved]
  - Injection site pain [Unknown]
  - Hypoacusis [Unknown]
  - Arthralgia [Unknown]
  - Hypertension [Recovered/Resolved]
  - Weight decreased [Recovering/Resolving]

NARRATIVE: CASE EVENT DATE: 2015
